FAERS Safety Report 25545669 (Version 1)
Quarter: 2025Q3

REPORT INFORMATION
  Report Type: Spontaneous
  Country: EU (occurrence: EU)
  Receive Date: 20250712
  Receipt Date: 20250712
  Transmission Date: 20251020
  Serious: Yes (Other)
  Sender: CELLTRION
  Company Number: None

PATIENT

DRUGS (1)
  1. YUFLYMA [Suspect]
     Active Substance: ADALIMUMAB-AATY
     Indication: Rheumatic disorder
     Dosage: 1 DF, EVERY 2 WEEKS (100MG/ML)
     Dates: start: 20240903, end: 20250228

REACTIONS (2)
  - Petechiae [Not Recovered/Not Resolved]
  - Platelet count decreased [Not Recovered/Not Resolved]
